FAERS Safety Report 9479296 (Version 2)
Quarter: 2013Q3

REPORT INFORMATION
  Report Type: Report from Study
  Country: US (occurrence: US)
  Receive Date: 20130827
  Receipt Date: 20130827
  Transmission Date: 20140515
  Serious: Yes (Other)
  Sender: FDA-Public Use
  Company Number: US-US-EMD SERONO, INC.-7224913

PATIENT
  Age: 41 Year
  Sex: Female

DRUGS (3)
  1. REBIF [Suspect]
     Indication: MULTIPLE SCLEROSIS
     Route: 058
     Dates: start: 20130321
  2. LYRICA [Concomitant]
     Indication: PAIN
     Dates: start: 201301
  3. LYRICA [Concomitant]
     Indication: MUSCLE SPASMS

REACTIONS (2)
  - Diabetes mellitus [Unknown]
  - Suicidal ideation [Not Recovered/Not Resolved]
